FAERS Safety Report 6985944-9 (Version None)
Quarter: 2010Q3

REPORT INFORMATION
  Report Type: 
  Country: None (occurrence: None)
  Receive Date: 20100915
  Receipt Date: 20100903
  Transmission Date: 20110219
  Serious: Yes (Other)
  Sender: FDA-Public Use
  Company Number: TR-ELI_LILLY_AND_COMPANY-TR201009001853

PATIENT
  Age: 30 Year
  Sex: Female

DRUGS (2)
  1. HUMULIN N [Suspect]
     Indication: GESTATIONAL DIABETES
     Dosage: 18 U, DAILY (1/D)
     Route: 058
     Dates: start: 20100601
  2. HUMULIN R [Suspect]
     Indication: GESTATIONAL DIABETES
     Dosage: 30 U, 3/D
     Route: 058
     Dates: start: 20100601, end: 20100815

REACTIONS (2)
  - ABORTION SPONTANEOUS [None]
  - DRUG EXPOSURE DURING PREGNANCY [None]
